FAERS Safety Report 9294911 (Version 2)
Quarter: 2013Q2

REPORT INFORMATION
  Report Type: Spontaneous
  Country: US (occurrence: None)
  Receive Date: 20121227
  Receipt Date: 20130507
  Transmission Date: 20140414
  Serious: No
  Sender: FDA-Public Use
  Company Number: PHEH2012US021227

PATIENT
  Sex: Female

DRUGS (7)
  1. AFINITOR [Suspect]
     Indication: PANCREATIC NEUROENDOCRINE TUMOUR
     Route: 048
     Dates: start: 20121010, end: 20121203
  2. ARMOUR THYROID (THYROID) [Concomitant]
  3. SERTRALINE (SERTRALINE) [Concomitant]
  4. SIMVASTATIN (SIMVASTATIN) [Concomitant]
  5. PANTOPRAZOLE (PANTOPRAZOLE) [Concomitant]
  6. LORATIDINE [Concomitant]
  7. SYMBICORT [Concomitant]

REACTIONS (6)
  - Malaise [None]
  - Asthenia [None]
  - Fatigue [None]
  - Pancreatic neuroendocrine tumour [None]
  - Malignant neoplasm progression [None]
  - Drug ineffective [None]
